FAERS Safety Report 4622756-5 (Version None)
Quarter: 2005Q1

REPORT INFORMATION
  Report Type: 
  Country: None (occurrence: None)
  Receive Date: 20050328
  Receipt Date: 20050328
  Transmission Date: 20050727
  Serious: No
  Sender: FDA-Public Use
  Company Number: None

PATIENT
  Sex: Male
  Weight: 68.0396 kg

DRUGS (2)
  1. FLOMAX [Suspect]
     Indication: PROSTATIC DISORDER
     Dosage: ORAL
     Route: 048
     Dates: start: 20030101, end: 20050325
  2. FLOMAX [Suspect]
     Indication: URINARY TRACT DISORDER
     Dosage: ORAL
     Route: 048
     Dates: start: 20030101, end: 20050325

REACTIONS (3)
  - CATARACT OPERATION [None]
  - IRIS DISORDER [None]
  - MYDRIASIS [None]
